FAERS Safety Report 8212770-5 (Version None)
Quarter: 2012Q1

REPORT INFORMATION
  Report Type: 
  Country: None (occurrence: None)
  Receive Date: 20120315
  Receipt Date: 20120305
  Transmission Date: 20120608
  Serious: Yes (Other)
  Sender: FDA-Public Use
  Company Number: GB-BRISTOL-MYERS SQUIBB COMPANY-16434391

PATIENT
  Age: 53 Year
  Sex: Female

DRUGS (2)
  1. ADCORTYL TAB [Suspect]
     Indication: PSORIASIS
  2. LIDOCAINE [Suspect]
     Indication: PSORIASIS

REACTIONS (1)
  - KOEBNER PHENOMENON [None]
